FAERS Safety Report 5177758-X (Version None)
Quarter: 2006Q4

REPORT INFORMATION
  Report Type: 
  Country: None (occurrence: None)
  Receive Date: 20061208
  Receipt Date: 20061128
  Transmission Date: 20070319
  Serious: Yes (Disabling, Other)
  Sender: FDA-Public Use
  Company Number: GXKR2006FR07713

PATIENT
  Age: 58 Year
  Sex: Male
  Weight: 84 kg

DRUGS (6)
  1. PREDNISOLONE [Suspect]
     Dosage: 80 MG, QD, ORAL
     Route: 048
     Dates: start: 20060217, end: 20060225
  2. OFLOXACIN [Suspect]
     Indication: OTORRHOEA
     Dosage: 1.5 MG, BID, EAR CANAL
     Route: 001
     Dates: start: 20060217, end: 20060225
  3. INDAPAMIDE [Concomitant]
  4. AMOXICILLIN/CLAVULANIC ACID (AMOXICILLIN, CLAVULANIC ACID) [Concomitant]
  5. NAPHAZOLINE (NAPHAZOLINE) [Concomitant]
  6. PREDNISOLONE [Concomitant]

REACTIONS (3)
  - SENSORY DISTURBANCE [None]
  - TENDON RUPTURE [None]
  - TENDONITIS [None]
